FAERS Safety Report 8151558-0 (Version None)
Quarter: 2012Q1

REPORT INFORMATION
  Report Type: 
  Country: None (occurrence: None)
  Receive Date: 20120220
  Receipt Date: 20120215
  Transmission Date: 20120608
  Serious: Yes (Hospitalization)
  Sender: FDA-Public Use
  Company Number: BR-ROCHE-765402

PATIENT
  Sex: Female
  Weight: 150 kg

DRUGS (18)
  1. DIAZEPAM [Suspect]
     Indication: PRODUCT USED FOR UNKNOWN INDICATION
     Route: 065
  2. SERTRALINE HYDROCHLORIDE [Concomitant]
  3. PREDNISONE [Concomitant]
  4. CHLOROQUINE PHOSPHATE [Concomitant]
  5. HYDROCHLOROTHIAZIDE [Concomitant]
  6. OMEPRAZOLE [Concomitant]
  7. HYDROXYCHLOROQUINE SULFATE [Concomitant]
  8. ALENIA (BRAZIL) [Concomitant]
     Indication: ASTHMA
  9. REVATIO [Concomitant]
  10. NEOSALDINA [Concomitant]
  11. AMITRIPTYLINE HCL [Concomitant]
  12. CLONAZEPAM [Concomitant]
  13. ALDACTONE [Concomitant]
  14. NYSTATIN [Concomitant]
  15. GENERIC COMPONENT(S) NOT KNOWN [Concomitant]
  16. MABTHERA [Suspect]
     Indication: RHEUMATOID ARTHRITIS
     Dosage: FORM: INFUSION
     Route: 065
     Dates: start: 20090801, end: 20110301
  17. LOSARTAN POTASSIUM [Concomitant]
     Route: 065
  18. AMOXICILLIN AND CLAVULANATE POTASSIUM [Concomitant]
     Route: 065

REACTIONS (3)
  - HYPERSENSITIVITY [None]
  - PULMONARY HYPERTENSION [None]
  - OROPHARYNGEAL PAIN [None]
